FAERS Safety Report 4617112-X (Version None)
Quarter: 2005Q1

REPORT INFORMATION
  Report Type: 
  Country: None (occurrence: None)
  Receive Date: 20050323
  Receipt Date: 20041006
  Transmission Date: 20050727
  Serious: Yes (Life-Threatening, Hospitalization, Disabling, Other)
  Sender: FDA-Public Use
  Company Number: US-MERCK-0410USA00949

PATIENT
  Age: 62 Year
  Sex: Male
  Weight: 84 kg

DRUGS (6)
  1. VIOXX [Suspect]
     Indication: ARTHRALGIA
     Route: 048
     Dates: start: 20010705, end: 20041002
  2. [THERAPY UNSPECIFIED] [Concomitant]
     Route: 065
  3. ZESTRIL [Concomitant]
     Route: 065
  4. XANAX [Concomitant]
     Route: 065
  5. PROCARDIA [Concomitant]
     Route: 065
  6. PRAVACHOL [Concomitant]
     Route: 065

REACTIONS (6)
  - ADVERSE EVENT [None]
  - CARDIAC ARREST [None]
  - CHEST PAIN [None]
  - GASTRITIS [None]
  - HERNIA [None]
  - MYOCARDIAL INFARCTION [None]
